FAERS Safety Report 20014044 (Version 1)
Quarter: 2021Q4

REPORT INFORMATION
  Report Type: Spontaneous
  Country: DE (occurrence: DE)
  Receive Date: 20211029
  Receipt Date: 20211029
  Transmission Date: 20220303
  Serious: Yes (Death, Other)
  Sender: FDA-Public Use
  Company Number: DE-UNITED THERAPEUTICS-UNT-2021-021892

PATIENT

DRUGS (2)
  1. REMODULIN [Suspect]
     Active Substance: TREPROSTINIL
     Indication: Pulmonary arterial hypertension
     Dosage: UNK UNK, CONTINUING
     Route: 041
     Dates: start: 20190503
  2. REMODULIN [Suspect]
     Active Substance: TREPROSTINIL
     Dosage: 0.0296 ?G/KG, CONTINUING (20 ML VIAL)
     Route: 041
     Dates: end: 20211025

REACTIONS (1)
  - Pulmonary arterial hypertension [Fatal]
